FAERS Safety Report 6550848-2 (Version None)
Quarter: 2010Q1

REPORT INFORMATION
  Report Type: 
  Country: None (occurrence: None)
  Receive Date: 20100122
  Receipt Date: 20100122
  Transmission Date: 20100710
  Serious: Yes (Hospitalization)
  Sender: FDA-Public Use
  Company Number: None

PATIENT
  Age: 50 Year
  Sex: Male
  Weight: 106.2 kg

DRUGS (1)
  1. FISH FLEX-CEPHALEXIN 250 MG THOMAS LABORATORIES-THOMAS [Suspect]
     Indication: INFECTED BUNION
     Dosage: 250 MG X1 PO
     Route: 048
     Dates: start: 20100120, end: 20100120

REACTIONS (11)
  - BLOOD PRESSURE SYSTOLIC DECREASED [None]
  - CHEST DISCOMFORT [None]
  - CHEST PAIN [None]
  - DIZZINESS [None]
  - DYSPNOEA [None]
  - HYPOTENSION [None]
  - NAUSEA [None]
  - PRURITUS [None]
  - RASH GENERALISED [None]
  - SELF-MEDICATION [None]
  - WRONG DRUG ADMINISTERED [None]
